FAERS Safety Report 17282221 (Version 1)
Quarter: 2020Q1

REPORT INFORMATION
  Report Type: Spontaneous
  Country: US (occurrence: US)
  Receive Date: 20191230
  Receipt Date: 20191230
  Transmission Date: 20200409
  Serious: No
  Sender: FDA-Public Use
  Company Number: None

PATIENT
  Age: 77 Year
  Sex: Female
  Weight: 50.8 kg

DRUGS (2)
  1. COSENTYX [Suspect]
     Active Substance: SECUKINUMAB
     Indication: ANKYLOSING SPONDYLITIS
     Route: 058
     Dates: start: 201810
  2. COSENTYX [Suspect]
     Active Substance: SECUKINUMAB
     Indication: OSTEOPOROSIS
     Route: 058
     Dates: start: 201810

REACTIONS (2)
  - Fall [None]
  - Pruritus [None]
